FAERS Safety Report 7623340-1 (Version None)
Quarter: 2011Q3

REPORT INFORMATION
  Report Type: 
  Country: None (occurrence: None)
  Receive Date: 20110720
  Receipt Date: 20110712
  Transmission Date: 20111222
  Serious: Yes (Hospitalization)
  Sender: FDA-Public Use
  Company Number: JP-ROCHE-779717

PATIENT
  Sex: Female

DRUGS (15)
  1. PREDNISOLONE SODIUM SUCCINATE INJ [Suspect]
     Indication: JUVENILE ARTHRITIS
     Route: 042
     Dates: start: 20110606
  2. NAPROXEN [Concomitant]
     Route: 048
     Dates: start: 20110605
  3. PREDNISOLONE [Suspect]
     Route: 048
     Dates: start: 20101227, end: 20110130
  4. PREDNISOLONE [Suspect]
     Route: 048
     Dates: start: 20110420, end: 20110426
  5. TOCILIZUMAB [Suspect]
     Route: 041
     Dates: start: 20110510
  6. PREDNISOLONE [Suspect]
     Route: 048
     Dates: start: 20110510, end: 20110605
  7. PREDNISOLONE [Suspect]
     Indication: JUVENILE ARTHRITIS
     Dosage: FORM:PERORAL AGENT
     Route: 048
     Dates: end: 20101205
  8. PREDNISOLONE [Suspect]
     Route: 048
     Dates: start: 20110412, end: 20110419
  9. TOCILIZUMAB [Suspect]
     Indication: JUVENILE ARTHRITIS
     Route: 041
     Dates: start: 20110318, end: 20110318
  10. PREDNISOLONE [Suspect]
     Route: 048
     Dates: start: 20101206, end: 20101226
  11. PREDNISOLONE [Suspect]
     Route: 048
     Dates: start: 20110215, end: 20110227
  12. PREDNISOLONE [Suspect]
     Route: 048
     Dates: start: 20110307, end: 20110321
  13. PREDNISOLONE [Suspect]
     Route: 048
     Dates: start: 20110131, end: 20110214
  14. PREDNISOLONE [Suspect]
     Route: 048
     Dates: start: 20110228, end: 20110306
  15. PREDNISOLONE [Suspect]
     Route: 048
     Dates: start: 20110427, end: 20110509

REACTIONS (2)
  - HISTIOCYTOSIS HAEMATOPHAGIC [None]
  - INFECTIOUS PERITONITIS [None]
